FAERS Safety Report 25676553 (Version 1)
Quarter: 2025Q3

REPORT INFORMATION
  Report Type: Spontaneous
  Country: EU (occurrence: EU)
  Receive Date: 20250813
  Receipt Date: 20250813
  Transmission Date: 20251020
  Serious: Yes (Other)
  Sender: NOVO NORDISK
  Company Number: None

PATIENT
  Age: 14 Year
  Sex: Female
  Weight: 68 kg

DRUGS (1)
  1. OZEMPIC [Suspect]
     Active Substance: SEMAGLUTIDE
     Indication: Intentional self-injury
     Route: 058

REACTIONS (3)
  - Intentional self-injury [Not Recovered/Not Resolved]
  - Nausea [Not Recovered/Not Resolved]
  - Product use in unapproved indication [Unknown]
